FAERS Safety Report 18650223 (Version 1)
Quarter: 2020Q4

REPORT INFORMATION
  Report Type: Spontaneous
  Country: IN (occurrence: IN)
  Receive Date: 20201222
  Receipt Date: 20201222
  Transmission Date: 20210114
  Serious: Yes (Other)
  Sender: FDA-Public Use
  Company Number: IN-HORMOSAN PHARMA GMBH-2020-05924

PATIENT
  Age: 24 Year
  Sex: Female
  Weight: 64 kg

DRUGS (1)
  1. EPILIVE FILM C.TABS ER 500 MG [Suspect]
     Active Substance: LEVETIRACETAM
     Indication: EPILEPSY
     Dosage: 1500 MILLIGRAM (3 DF, EXTENDED RELEASE TABLET)
     Route: 065

REACTIONS (3)
  - Somnolence [Recovered/Resolved]
  - Vertigo [Recovered/Resolved]
  - Vomiting [Recovered/Resolved]

NARRATIVE: CASE EVENT DATE: 20200905
